FAERS Safety Report 15640288 (Version 1)
Quarter: 2018Q4

REPORT INFORMATION
  Report Type: Spontaneous
  Country: JP (occurrence: JP)
  Receive Date: 20181120
  Receipt Date: 20181120
  Transmission Date: 20190205
  Serious: Yes (Hospitalization, Other)
  Sender: FDA-Public Use
  Company Number: PHHY2018JP156125

PATIENT
  Age: 4 Year
  Sex: Male

DRUGS (3)
  1. MYCOPHENOLATE MOFETIL. [Suspect]
     Active Substance: MYCOPHENOLATE MOFETIL
     Indication: GRAFT VERSUS HOST DISEASE IN SKIN
     Dosage: 6 MG/KG, QD
     Route: 065
  2. PNEUMOCOCCAL VACCINE CONJ 13V (CRM197) [Concomitant]
     Indication: IMMUNISATION
     Route: 065
  3. MYCOPHENOLATE MOFETIL. [Suspect]
     Active Substance: MYCOPHENOLATE MOFETIL
     Indication: BONE MARROW TRANSPLANT

REACTIONS (8)
  - Altered state of consciousness [Recovered/Resolved]
  - Haemorrhage [Recovered/Resolved]
  - Encephalopathy [Recovered/Resolved]
  - Pain in extremity [Recovered/Resolved]
  - Purpura fulminans [Recovered/Resolved]
  - Pyrexia [Recovered/Resolved]
  - Pneumonia streptococcal [Recovered/Resolved]
  - Product use in unapproved indication [Unknown]
